FAERS Safety Report 5515637-6 (Version None)
Quarter: 2007Q4

REPORT INFORMATION
  Report Type: 
  Country: None (occurrence: None)
  Receive Date: 20071113
  Receipt Date: 20070718
  Transmission Date: 20080405
  Serious: No
  Sender: FDA-Public Use
  Company Number: A0664848A

PATIENT
  Age: 43 Year
  Sex: Female

DRUGS (5)
  1. COREG [Suspect]
     Dosage: 25MG TWICE PER DAY
     Route: 048
     Dates: start: 20050701
  2. COREG CR [Suspect]
     Dosage: 40MG PER DAY
     Route: 048
     Dates: start: 20070704
  3. COUMADIN [Concomitant]
  4. ALTACE [Concomitant]
  5. SYNTHROID [Concomitant]

REACTIONS (1)
  - HYPOAESTHESIA [None]
